FAERS Safety Report 4308865-9 (Version None)
Quarter: 2004Q1

REPORT INFORMATION
  Report Type: 
  Country: None (occurrence: None)
  Receive Date: 20040301
  Receipt Date: 20040301
  Transmission Date: 20041129
  Serious: Yes (Hospitalization, Congenital Anomaly)
  Sender: FDA-Public Use
  Company Number: None

PATIENT
  Age: 72 Year
  Sex: Male
  Weight: 99.8 kg

DRUGS (7)
  1. WARFARIN SODIUM [Suspect]
     Indication: ATRIAL FIBRILLATION
     Dosage: 2.5 MG QD CHRONIC
  2. NORVASC [Concomitant]
  3. LESCOL [Concomitant]
  4. TOPROL-XL [Concomitant]
  5. DIOVAN HCT [Concomitant]
  6. LASIX [Concomitant]
  7. POTASSIUM [Concomitant]

REACTIONS (4)
  - DIZZINESS [None]
  - FAECES DISCOLOURED [None]
  - HAEMATOCHEZIA [None]
  - WEIGHT DECREASED [None]
